FAERS Safety Report 6422025-7 (Version None)
Quarter: 2009Q4

REPORT INFORMATION
  Report Type: 
  Country: None (occurrence: None)
  Receive Date: 20091029
  Receipt Date: 20091029
  Transmission Date: 20100525
  Serious: Yes (Hospitalization)
  Sender: FDA-Public Use
  Company Number: None

PATIENT
  Age: 74 Year
  Sex: Male
  Weight: 156 kg

DRUGS (2)
  1. GLIPIZIDE [Suspect]
     Indication: TYPE 2 DIABETES MELLITUS
     Dosage: 10 MG BID PO
     Route: 048
     Dates: start: 20041029, end: 20091026
  2. METFORMIN HCL [Suspect]
     Indication: TYPE 2 DIABETES MELLITUS
     Dosage: 500 MG BID PO
     Route: 048
     Dates: start: 20060925, end: 20091026

REACTIONS (2)
  - HYPOGLYCAEMIA [None]
  - UNRESPONSIVE TO STIMULI [None]
